FAERS Safety Report 4853023-2 (Version None)
Quarter: 2005Q4

REPORT INFORMATION
  Report Type: 
  Country: None (occurrence: None)
  Receive Date: 20051212
  Receipt Date: 20051115
  Transmission Date: 20060501
  Serious: Yes (Other)
  Sender: FDA-Public Use
  Company Number: US200512000631

PATIENT
  Age: 13 Year
  Sex: Male

DRUGS (3)
  1. STRATTERA [Suspect]
     Dosage: SEE IMAGE
     Dates: start: 20050101
  2. ADDERALL (AMFETAMINE ASPARTATE, AMFETAMINE SULFATE, DEXAMFETAMINE SCAC [Concomitant]
  3. RISPERIDONE [Concomitant]

REACTIONS (5)
  - HALLUCINATION, AUDITORY [None]
  - HYPERHIDROSIS [None]
  - IRRITABILITY [None]
  - ONYCHOPHAGIA [None]
  - PANIC DISORDER [None]
